FAERS Safety Report 6987295-5 (Version None)
Quarter: 2010Q3

REPORT INFORMATION
  Report Type: 
  Country: None (occurrence: None)
  Receive Date: 20100916
  Receipt Date: 20100825
  Transmission Date: 20110219
  Serious: Yes (Other)
  Sender: FDA-Public Use
  Company Number: CO-TYCO HEALTHCARE/MALLINCKRODT-T201001972

PATIENT
  Age: 31 Year
  Sex: Male
  Weight: 70 kg

DRUGS (1)
  1. OPTIRAY 350 [Suspect]
     Indication: ANGIOGRAM
     Dosage: UNK
     Route: 042

REACTIONS (11)
  - CHEST PAIN [None]
  - HYPOVENTILATION [None]
  - MALAISE [None]
  - MYOCARDIAL ISCHAEMIA [None]
  - NAUSEA [None]
  - PALLOR [None]
  - RESPIRATORY DISTRESS [None]
  - RHINORRHOEA [None]
  - STRIDOR [None]
  - TACHYCARDIA [None]
  - WHEEZING [None]
